FAERS Safety Report 9086546 (Version 1)
Quarter: 2013Q1

REPORT INFORMATION
  Report Type: Report from Study
  Country: US (occurrence: US)
  Receive Date: 20130131
  Receipt Date: 20130131
  Transmission Date: 20140127
  Serious: No
  Sender: FDA-Public Use
  Company Number: US-ABBOTT-12P-163-0995509-00

PATIENT
  Age: 61 Year
  Sex: Female

DRUGS (19)
  1. HUMIRA [Suspect]
     Indication: RHEUMATOID ARTHRITIS
     Dates: start: 20121013
  2. CRESTOR [Concomitant]
     Indication: BLOOD PRESSURE
     Dosage: 10 MG DAILY
     Route: 048
  3. CRESTOR [Concomitant]
     Indication: CARDIOVASCULAR DISORDER
  4. DILTIAZEM ER [Concomitant]
     Indication: CARDIOVASCULAR DISORDER
     Dosage: AT BEDTIME
  5. LORTAB [Concomitant]
     Indication: ARTHRALGIA
     Dosage: 10/500 4 TIMES DAILY AS NEEDED
  6. LIDODERM PATCH 5% [Concomitant]
     Indication: PAIN
  7. LIDODERM PATCH 5% [Concomitant]
     Indication: RHEUMATOID ARTHRITIS
  8. OXYCODONE [Concomitant]
     Indication: RHEUMATOID ARTHRITIS
     Dosage: AS NEEDED
  9. PRILOSEC [Concomitant]
     Indication: HERNIA
     Dosage: 20 MG (2 PILLS) BEFORE DINNER
     Route: 048
  10. PRILOSEC [Concomitant]
     Indication: GASTROINTESTINAL DISORDER
  11. RECLAST [Concomitant]
     Indication: OSTEOPOROSIS
     Dosage: LAST INJECTION 29 JUN 2012
  12. TOPROL XL [Concomitant]
     Indication: HYPERTENSION
     Dosage: 100 MG X 1 PILL AM AND 1/2 PILL PM= 1 1/2 PILLS DAILY
  13. TRIAZOLAM [Concomitant]
     Indication: INSOMNIA
     Dosage: .25 MG (1 1/2 PILL) FOR SLEEP
     Route: 048
  14. CALCIUM PLUS D [Concomitant]
     Indication: OSTEOPOROSIS
     Dosage: 600 MG (TWO PILLS) DAILY
     Route: 048
  15. GLUCOSAMINE [Concomitant]
     Indication: ARTHROPATHY
     Dosage: 2 CAPSULES DAILY
  16. UNKNOWN HAIR VITAMIN OTC [Concomitant]
     Indication: ALOPECIA
  17. MVI OTC [Concomitant]
     Indication: NUTRITIONAL SUPPLEMENTATION
     Dosage: DAILY
  18. ALREX (LOTERPREDNOL ETABONATE) SUSPENSION 2% BAUSCH + LOMB [Concomitant]
     Indication: DRY EYE
     Dosage: 1 DROP EACH EYE THREE TIMES DAILY (FOR 3 WEEKS)
     Route: 047
  19. UNKNOWN MULTIPLE OTC AND RX EYE DROPS [Concomitant]
     Indication: DRY EYE
     Dosage: (WITH LITTLE RELIEF)

REACTIONS (4)
  - Device malfunction [Unknown]
  - Injection site pain [Recovering/Resolving]
  - Injection site bruising [Unknown]
  - Incorrect dose administered [Unknown]
